FAERS Safety Report 5572159-4 (Version None)
Quarter: 2007Q4

REPORT INFORMATION
  Report Type: 
  Country: None (occurrence: None)
  Receive Date: 20071221
  Receipt Date: 20071212
  Transmission Date: 20080405
  Serious: Yes (Other)
  Sender: FDA-Public Use
  Company Number: US-PFIZER INC-2007104398

PATIENT
  Sex: Male

DRUGS (2)
  1. VORICONAZOLE ORAL SUSPENSION [Suspect]
     Indication: FUNGAL INFECTION
     Route: 048
     Dates: start: 20070101, end: 20071203
  2. CHEMOTHERAPY NOS [Suspect]

REACTIONS (21)
  - APHONIA [None]
  - ARRHYTHMIA [None]
  - ASTHENIA [None]
  - DEMYELINATION [None]
  - DROOLING [None]
  - DYSPNOEA [None]
  - EATING DISORDER [None]
  - EYELID PTOSIS [None]
  - FALL [None]
  - FATIGUE [None]
  - GENERAL SYMPTOM [None]
  - HEART RATE DECREASED [None]
  - LABORATORY TEST ABNORMAL [None]
  - LIP BLISTER [None]
  - LIVER FUNCTION TEST ABNORMAL [None]
  - MOVEMENT DISORDER [None]
  - OCULAR ICTERUS [None]
  - PAIN [None]
  - PARALYSIS [None]
  - STOMACH DISCOMFORT [None]
  - VISUAL DISTURBANCE [None]
